FAERS Safety Report 22977272 (Version 2)
Quarter: 2024Q3

REPORT INFORMATION
  Report Type: Spontaneous
  Country: MX (occurrence: MX)
  Receive Date: 20230925
  Receipt Date: 20240711
  Transmission Date: 20241017
  Serious: Yes (Death, Life-Threatening, Hospitalization, Other)
  Sender: PFIZER
  Company Number: MX-MLMSERVICE-20230918-4545353-1

PATIENT
  Age: 8 Year
  Sex: Male

DRUGS (6)
  1. CYTARABINE [Suspect]
     Active Substance: CYTARABINE
     Indication: Acute lymphocytic leukaemia
     Dosage: UNK
  2. METHOTREXATE SODIUM [Suspect]
     Active Substance: METHOTREXATE SODIUM
     Indication: Acute lymphocytic leukaemia
     Dosage: UNK
  3. MERCAPTOPURINE [Suspect]
     Active Substance: MERCAPTOPURINE
     Indication: Acute lymphocytic leukaemia
     Dosage: UNK
  4. MITOXANTRONE [Suspect]
     Active Substance: MITOXANTRONE HYDROCHLORIDE
     Indication: Acute lymphocytic leukaemia
     Dosage: UNK
  5. HYDROCORTISONE [Suspect]
     Active Substance: HYDROCORTISONE\HYDROCORTISONE ACETATE
     Indication: Acute lymphocytic leukaemia
     Dosage: UNK
  6. LEUCOVORIN [Suspect]
     Active Substance: LEUCOVORIN\LEUCOVORIN CALCIUM
     Indication: Acute lymphocytic leukaemia
     Dosage: UNK

REACTIONS (7)
  - Systemic inflammatory response syndrome [Fatal]
  - Respiratory failure [Fatal]
  - Disseminated mucormycosis [Fatal]
  - Neutropenic colitis [Unknown]
  - Embolism [Unknown]
  - Dystrophic calcification [Unknown]
  - Intestinal obstruction [Unknown]
